FAERS Safety Report 6111394-3 (Version None)
Quarter: 2009Q1

REPORT INFORMATION
  Report Type: 
  Country: None (occurrence: None)
  Receive Date: 20090310
  Receipt Date: 20090310
  Transmission Date: 20090719
  Serious: Yes (Hospitalization)
  Sender: FDA-Public Use
  Company Number: None

PATIENT
  Age: 70 Year
  Sex: Male
  Weight: 81.1 kg

DRUGS (10)
  1. ALLOPURINOL [Suspect]
     Dosage: 300MG DAILY PO
     Route: 048
  2. PLAVIX [Concomitant]
  3. ASPIRIN [Concomitant]
  4. COLACE [Concomitant]
  5. COREG [Concomitant]
  6. ZOCOR [Concomitant]
  7. ALTACE [Concomitant]
  8. LASIX [Concomitant]
  9. XALATAN [Concomitant]
  10. GLUCOTROL [Concomitant]

REACTIONS (2)
  - ACUTE CORONARY SYNDROME [None]
  - SMALL INTESTINAL OBSTRUCTION [None]
